FAERS Safety Report 24340094 (Version 1)
Quarter: 2024Q3

REPORT INFORMATION
  Report Type: Spontaneous
  Country: US (occurrence: US)
  Receive Date: 20240919
  Receipt Date: 20240919
  Transmission Date: 20241017
  Serious: No
  Sender: MEITHEAL PHARMACEUTICALS
  Company Number: US-MEITHEAL-2024MPSPO00269

PATIENT
  Age: 60 Year
  Sex: Female
  Weight: 175 kg

DRUGS (3)
  1. ZOLEDRONIC ACID [Suspect]
     Active Substance: ZOLEDRONIC ACID
     Indication: Osteoporosis
     Route: 065
     Dates: start: 20240814
  2. ZOLEDRONIC ACID [Suspect]
     Active Substance: ZOLEDRONIC ACID
     Route: 065
     Dates: start: 20240821, end: 20240821
  3. TYLENOL [Concomitant]
     Active Substance: ACETAMINOPHEN
     Indication: Metabolic surgery
     Route: 065

REACTIONS (8)
  - Hypoaesthesia [Recovered/Resolved]
  - Pain [Recovered/Resolved]
  - Dyspnoea [Recovered/Resolved]
  - Pain in extremity [Not Recovered/Not Resolved]
  - Diarrhoea [Not Recovered/Not Resolved]
  - Peripheral swelling [Not Recovered/Not Resolved]
  - Arthralgia [Not Recovered/Not Resolved]
  - Bone pain [Not Recovered/Not Resolved]

NARRATIVE: CASE EVENT DATE: 20240821
